FAERS Safety Report 11397147 (Version 3)
Quarter: 2015Q3

REPORT INFORMATION
  Report Type: Spontaneous
  Country: US (occurrence: US)
  Receive Date: 20150819
  Receipt Date: 20150924
  Transmission Date: 20151125
  Serious: Yes (Hospitalization)
  Sender: FDA-Public Use
  Company Number: US-VERTEX PHARMACEUTICALS-2015-003292

PATIENT
  Age: 55 Year
  Sex: Female

DRUGS (1)
  1. ORKAMBI [Suspect]
     Active Substance: IVACAFTOR\LUMACAFTOR
     Indication: CYSTIC FIBROSIS
     Dosage: 200MG/125 MG, BID
     Route: 048
     Dates: start: 20150731

REACTIONS (4)
  - Cystic fibrosis respiratory infection suppression [Unknown]
  - Pyrexia [Unknown]
  - Blood urine present [Unknown]
  - Headache [Unknown]

NARRATIVE: CASE EVENT DATE: 20150804
